APPROVED DRUG PRODUCT: INSPRA
Active Ingredient: EPLERENONE
Strength: 25MG
Dosage Form/Route: TABLET;ORAL
Application: N021437 | Product #001 | TE Code: AB
Applicant: UPJOHN US 2 LLC
Approved: Sep 27, 2002 | RLD: Yes | RS: No | Type: RX